FAERS Safety Report 17816088 (Version 4)
Quarter: 2021Q1

REPORT INFORMATION
  Report Type: Spontaneous
  Country: US (occurrence: US)
  Receive Date: 20200522
  Receipt Date: 20210217
  Transmission Date: 20210419
  Serious: Yes (Other)
  Sender: FDA-Public Use
  Company Number: US-SUNOVION-2020SUN000313

PATIENT
  Sex: Male
  Weight: 63.04 kg

DRUGS (4)
  1. APTIOM [Suspect]
     Active Substance: ESLICARBAZEPINE ACETATE
     Indication: PARTIAL SEIZURES
     Dosage: 800 MG, HS
     Route: 048
     Dates: start: 2016
  2. APTIOM [Suspect]
     Active Substance: ESLICARBAZEPINE ACETATE
     Dosage: 400 MG, HS (1/2 TAB OF 800 MG= 400MG DAILY AT NIGHT)
     Route: 048
     Dates: start: 2016
  3. LORAZEPAM. [Suspect]
     Active Substance: LORAZEPAM
     Indication: INSOMNIA
     Dosage: 1/2 TAB OF 5MG DAILY AT NIGHT, HS
     Route: 065
  4. MELATONIN [Concomitant]
     Active Substance: MELATONIN
     Indication: INSOMNIA
     Dosage: 10 MG, HS PRN

REACTIONS (13)
  - Seizure [Unknown]
  - Weight gain poor [Not Recovered/Not Resolved]
  - Somnolence [Not Recovered/Not Resolved]
  - Weight decreased [Not Recovered/Not Resolved]
  - Abdominal discomfort [Not Recovered/Not Resolved]
  - Balance disorder [Not Recovered/Not Resolved]
  - Intentional underdose [Unknown]
  - Dizziness [Not Recovered/Not Resolved]
  - Prostate cancer [Unknown]
  - Therapeutic response unexpected [Unknown]
  - Agitation [Not Recovered/Not Resolved]
  - Amnesia [Unknown]
  - Insomnia [Not Recovered/Not Resolved]
